FAERS Safety Report 7771015-0 (Version None)
Quarter: 2011Q3

REPORT INFORMATION
  Report Type: 
  Country: None (occurrence: None)
  Receive Date: 20110922
  Receipt Date: 20100915
  Transmission Date: 20111222
  Serious: No
  Sender: FDA-Public Use
  Company Number: US-ASTRAZENECA-2010SE43464

PATIENT
  Sex: Male
  Weight: 90.7 kg

DRUGS (6)
  1. SEROQUEL [Suspect]
     Route: 048
  2. DEPAKOTE [Concomitant]
     Indication: AFFECTIVE DISORDER
  3. LITHIUM CARBONATE [Concomitant]
     Indication: AFFECTIVE DISORDER
  4. SEROQUEL [Suspect]
     Indication: MOOD SWINGS
     Route: 048
  5. SEROQUEL [Suspect]
     Indication: AGITATION
     Route: 048
  6. SEROQUEL [Suspect]
     Route: 048

REACTIONS (4)
  - MEMORY IMPAIRMENT [None]
  - DRUG DOSE OMISSION [None]
  - TREMOR [None]
  - AFFECTIVE DISORDER [None]
